FAERS Safety Report 11745430 (Version 1)
Quarter: 2015Q4

REPORT INFORMATION
  Report Type: Report from Study
  Country: US (occurrence: US)
  Receive Date: 20151117
  Receipt Date: 20151117
  Transmission Date: 20160304
  Serious: Yes (Death, Hospitalization, Other)
  Sender: FDA-Public Use
  Company Number: US-ROCHE-1657837

PATIENT
  Age: 80 Year
  Sex: Male
  Weight: 71.1 kg

DRUGS (3)
  1. IRINOTECAN [Suspect]
     Active Substance: IRINOTECAN
     Indication: COLORECTAL CANCER METASTATIC
     Dosage: LAST DOSE PRIOR TO SAE ON 29/10/2015
     Route: 048
     Dates: start: 20151029
  2. CETUXIMAB [Suspect]
     Active Substance: CETUXIMAB
     Indication: COLORECTAL CANCER METASTATIC
     Dosage: LAST DOSE PRIOR TO SAE ON 29/10/2015
     Route: 042
     Dates: start: 20151029
  3. VEMURAFENIB [Suspect]
     Active Substance: VEMURAFENIB
     Indication: COLORECTAL CANCER METASTATIC
     Dosage: LAST DOSE PRIOR TO SAE ON 11/NOV/2015.
     Route: 048
     Dates: start: 20151029

REACTIONS (7)
  - Sepsis [Fatal]
  - Febrile neutropenia [Unknown]
  - Atrial flutter [Unknown]
  - Anaemia [Unknown]
  - Dehydration [Unknown]
  - Lung infection [Not Recovered/Not Resolved]
  - Hyponatraemia [Unknown]

NARRATIVE: CASE EVENT DATE: 20151104
